FAERS Safety Report 24157708 (Version 2)
Quarter: 2024Q3

REPORT INFORMATION
  Report Type: Spontaneous
  Country: CA (occurrence: None)
  Receive Date: 20240731
  Receipt Date: 20240819
  Transmission Date: 20241016
  Serious: Yes (Other)
  Sender: ASTRAZENECA
  Company Number: 2020SF36404

PATIENT
  Age: 53 Year
  Sex: Female

DRUGS (16)
  1. SYMBICORT [Suspect]
     Active Substance: BUDESONIDE\FORMOTEROL FUMARATE DIHYDRATE
     Indication: Asthma
     Dosage: 2 DF TWO TIMES A DAY
     Route: 055
  2. MEPOLIZUMAB [Suspect]
     Active Substance: MEPOLIZUMAB
     Indication: Asthma
     Dosage: 100.0MG UNKNOWN
     Route: 042
     Dates: start: 20170127
  3. MEPOLIZUMAB [Suspect]
     Active Substance: MEPOLIZUMAB
     Indication: Asthma
     Dosage: 100.0MG UNKNOWN
     Route: 042
     Dates: start: 20170127
  4. MEPOLIZUMAB [Suspect]
     Active Substance: MEPOLIZUMAB
     Indication: Product used for unknown indication
     Dosage: 100.0MG UNKNOWN
     Route: 042
     Dates: start: 20170127
  5. MEPOLIZUMAB [Suspect]
     Active Substance: MEPOLIZUMAB
     Indication: Asthma
     Dosage: 100.0MG UNKNOWN
     Route: 042
  6. MEPOLIZUMAB [Suspect]
     Active Substance: MEPOLIZUMAB
     Indication: Asthma
     Dosage: 100.0MG UNKNOWN
     Route: 042
  7. MEPOLIZUMAB [Suspect]
     Active Substance: MEPOLIZUMAB
     Indication: Product used for unknown indication
     Dosage: 100.0MG UNKNOWN
     Route: 042
  8. MEPOLIZUMAB [Suspect]
     Active Substance: MEPOLIZUMAB
     Indication: Asthma
     Dosage: 100.0MG UNKNOWN
     Route: 042
  9. MEPOLIZUMAB [Suspect]
     Active Substance: MEPOLIZUMAB
     Indication: Asthma
     Dosage: 100.0MG UNKNOWN
     Route: 042
  10. MEPOLIZUMAB [Suspect]
     Active Substance: MEPOLIZUMAB
     Indication: Product used for unknown indication
     Dosage: 100.0MG UNKNOWN
     Route: 042
  11. SINGULAIR [Suspect]
     Active Substance: MONTELUKAST SODIUM
     Indication: Asthma
  12. PANTOPRAZOLE [Suspect]
     Active Substance: PANTOPRAZOLE
     Indication: Reflux gastritis
     Dosage: TWO TIMES A DAY
  13. PREDNISONE [Suspect]
     Active Substance: PREDNISONE
     Indication: Condition aggravated
     Dates: start: 20170224
  14. VENTOLIN [Suspect]
     Active Substance: ALBUTEROL SULFATE
     Indication: Product used for unknown indication
  15. SPIRIVA [Suspect]
     Active Substance: TIOTROPIUM BROMIDE MONOHYDRATE
     Indication: Asthma
  16. SPIRIVA [Suspect]
     Active Substance: TIOTROPIUM BROMIDE MONOHYDRATE
     Indication: Asthma

REACTIONS (13)
  - Type 2 diabetes mellitus [Unknown]
  - Asthma [Unknown]
  - Dyspnoea exertional [Recovered/Resolved]
  - Gastrooesophageal reflux disease [Unknown]
  - Increased bronchial secretion [Unknown]
  - Productive cough [Unknown]
  - Sinus disorder [Unknown]
  - Sputum discoloured [Unknown]
  - Upper-airway cough syndrome [Unknown]
  - Dizziness [Recovered/Resolved]
  - Stress [Unknown]
  - Product dose omission issue [Unknown]
  - Therapeutic product effect incomplete [Unknown]
